FAERS Safety Report 11030637 (Version 1)
Quarter: 2015Q2

REPORT INFORMATION
  Report Type: Spontaneous
  Country: None (occurrence: None)
  Receive Date: 20150414
  Receipt Date: 20150414
  Transmission Date: 20150821
  Serious: No
  Sender: FDA-Public Use
  Company Number: None

PATIENT
  Age: 63 Year
  Sex: Female

DRUGS (1)
  1. ELIQUIS [Suspect]
     Active Substance: APIXABAN
     Indication: ATRIAL FIBRILLATION
     Dosage: 1 PILL
     Route: 048
     Dates: start: 20150101, end: 20150413

REACTIONS (2)
  - Arthralgia [None]
  - Bone pain [None]

NARRATIVE: CASE EVENT DATE: 20150413
